FAERS Safety Report 7655739-1 (Version None)
Quarter: 2011Q3

REPORT INFORMATION
  Report Type: 
  Country: None (occurrence: None)
  Receive Date: 20110729
  Receipt Date: 20110714
  Transmission Date: 20111222
  Serious: Yes (Hospitalization)
  Sender: FDA-Public Use
  Company Number: 2011MA008666

PATIENT
  Age: 93 Year
  Sex: Female

DRUGS (11)
  1. METFORMIN HYDROCHLORIDE [Suspect]
     Indication: DIABETES MELLITUS
     Dosage: 500 MG;BID;PO
     Route: 048
     Dates: start: 20110601
  2. TOILAX [Concomitant]
  3. INTERTULLE FUCIDIN [Concomitant]
  4. PERILAX [Concomitant]
  5. FUROSEMIDE [Concomitant]
  6. ASPIRIN [Concomitant]
  7. GLIMEPIRIDE [Concomitant]
  8. POTASSIUM CHLORIDE [Concomitant]
  9. SIMVASTATIN [Concomitant]
  10. AMARYL [Concomitant]
  11. MORPHINE SULFATE [Suspect]
     Indication: PAIN

REACTIONS (4)
  - ABDOMINAL PAIN [None]
  - VOMITING [None]
  - METABOLIC ALKALOSIS [None]
  - NAUSEA [None]
